FAERS Safety Report 10052331 (Version 1)
Quarter: 2014Q2

REPORT INFORMATION
  Report Type: Spontaneous
  Country: US (occurrence: None)
  Receive Date: 20140401
  Receipt Date: 20140401
  Transmission Date: 20141212
  Serious: Yes (Other)
  Sender: FDA-Public Use
  Company Number: None

PATIENT
  Age: 50 Year
  Sex: Female
  Weight: 72.12 kg

DRUGS (1)
  1. OXCARBAZEPINE [Suspect]
     Indication: BIPOLAR II DISORDER
     Route: 048
     Dates: start: 20140314, end: 20140314

REACTIONS (11)
  - Hypopnoea [None]
  - Confusional state [None]
  - Dizziness [None]
  - Nausea [None]
  - Speech disorder [None]
  - Motor dysfunction [None]
  - Vision blurred [None]
  - Heart rate increased [None]
  - Mydriasis [None]
  - Blood glucose abnormal [None]
  - Eye disorder [None]
